FAERS Safety Report 6204290-4 (Version None)
Quarter: 2009Q2

REPORT INFORMATION
  Report Type: 
  Country: None (occurrence: None)
  Receive Date: 20090518
  Receipt Date: 20090225
  Transmission Date: 20091009
  Serious: No
  Sender: FDA-Public Use
  Company Number: WAES 0901USA00008

PATIENT
  Sex: Female

DRUGS (1)
  1. JANUVIA [Suspect]
     Indication: DIABETES MELLITUS
     Dosage: 50 MG/DAILY/PO; DAILY/PO
     Route: 048
     Dates: start: 20070101

REACTIONS (4)
  - ADVERSE EVENT [None]
  - COUGH [None]
  - HUNGER [None]
  - WRONG TECHNIQUE IN DRUG USAGE PROCESS [None]
